FAERS Safety Report 9398376 (Version 1)
Quarter: 2013Q3

REPORT INFORMATION
  Report Type: Report from Study
  Country: US (occurrence: US)
  Receive Date: 20130712
  Receipt Date: 20130712
  Transmission Date: 20140515
  Serious: Yes (Other)
  Sender: FDA-Public Use
  Company Number: US-UCBSA-091125

PATIENT
  Age: 23 Year
  Sex: Female
  Weight: 62.1 kg

DRUGS (4)
  1. CERTOLIZUMAB PEGOL [Suspect]
     Indication: RHEUMATOID ARTHRITIS
     Route: 058
     Dates: start: 20120418, end: 20130429
  2. ALBUTEROL SULFATE [Concomitant]
     Indication: ASTHMA
     Route: 048
     Dates: start: 20090102
  3. CELEBREX [Concomitant]
     Indication: RHEUMATOID ARTHRITIS
     Dosage: 200-400 MG PRN
     Route: 048
     Dates: start: 20090322
  4. FOLIC ACID [Concomitant]
     Indication: RHEUMATOID ARTHRITIS
     Route: 048
     Dates: start: 20120905

REACTIONS (1)
  - Mycobacterium tuberculosis complex test positive [Recovering/Resolving]
